FAERS Safety Report 23984910 (Version 1)
Quarter: 2024Q2

REPORT INFORMATION
  Report Type: Spontaneous
  Country: IL (occurrence: IL)
  Receive Date: 20240618
  Receipt Date: 20240618
  Transmission Date: 20240716
  Serious: Yes (Other)
  Sender: FDA-Public Use
  Company Number: IL-BAYER-2024A084538

PATIENT
  Age: 69 Year
  Sex: Male

DRUGS (2)
  1. KERENDIA [Suspect]
     Active Substance: FINERENONE
     Dosage: 10 MG
     Dates: start: 202303
  2. ALDACTONE [Suspect]
     Active Substance: SPIRONOLACTONE
     Dosage: 12.5 MG
     Dates: start: 20240609

REACTIONS (6)
  - Rheumatoid arthritis [None]
  - Nocturia [None]
  - Asthma [None]
  - Hypertension [None]
  - Oedema peripheral [None]
  - Contraindicated product administered [None]
